FAERS Safety Report 11855799 (Version 3)
Quarter: 2016Q1

REPORT INFORMATION
  Report Type: Spontaneous
  Country: JP (occurrence: JP)
  Receive Date: 20151221
  Receipt Date: 20160222
  Transmission Date: 20160526
  Serious: Yes (Hospitalization, Other)
  Sender: FDA-Public Use
  Company Number: JP-GLAXOSMITHKLINE-JP2015JPN176533

PATIENT
  Age: 65 Year
  Sex: Male

DRUGS (3)
  1. VALACICLOVIR [Suspect]
     Active Substance: VALACYCLOVIR HYDROCHLORIDE
  2. PREDNISOLONE. [Concomitant]
     Active Substance: PREDNISOLONE
     Dosage: 30 MG, 1D
  3. ZOVIRAX [Suspect]
     Active Substance: ACYCLOVIR
     Dosage: 750 MG, 1D
     Route: 041
     Dates: start: 20150608, end: 20150614

REACTIONS (8)
  - Pyrexia [Unknown]
  - Vitreous floaters [Unknown]
  - Visual acuity reduced [Unknown]
  - Peripheral T-cell lymphoma unspecified [Unknown]
  - Uveitis [Recovered/Resolved]
  - Lymphadenopathy [Unknown]
  - Malaise [Unknown]
  - Immunodeficiency [Unknown]

NARRATIVE: CASE EVENT DATE: 201507
